FAERS Safety Report 6494726-6 (Version None)
Quarter: 2009Q4

REPORT INFORMATION
  Report Type: 
  Country: None (occurrence: None)
  Receive Date: 20091214
  Receipt Date: 20090319
  Transmission Date: 20100525
  Serious: No
  Sender: FDA-Public Use
  Company Number: US-BRISTOL-MYERS SQUIBB COMPANY-14551394

PATIENT
  Age: 61 Year
  Sex: Female
  Weight: 63 kg

DRUGS (6)
  1. ABILIFY [Suspect]
     Indication: MAJOR DEPRESSION
     Dosage: 3 WEEKS AGO
  2. PRISTIQ [Concomitant]
  3. BENTYL [Concomitant]
  4. LIBRAX [Concomitant]
  5. PROTONIX [Concomitant]
  6. BUSPIRONE HCL [Concomitant]

REACTIONS (2)
  - FATIGUE [None]
  - LETHARGY [None]
